FAERS Safety Report 9328412 (Version 1)
Quarter: 2013Q2

REPORT INFORMATION
  Report Type: Spontaneous
  Country: US (occurrence: US)
  Receive Date: 20130604
  Receipt Date: 20130604
  Transmission Date: 20140414
  Serious: No
  Sender: FDA-Public Use
  Company Number: US-SANOFI-AVENTIS-2012SA049484

PATIENT
  Age: 59 Year
  Sex: Female

DRUGS (3)
  1. LANTUS SOLOSTAR [Suspect]
     Indication: DIABETES MELLITUS
     Dosage: 4 UNITS AND 20 UNITS TWICE DAILY.
     Route: 058
     Dates: start: 201201
  2. LANTUS SOLOSTAR [Suspect]
     Indication: DIABETES MELLITUS
     Dosage: 20 UNITS IN THE MORNING AND 25 UNITS AT NIGHT.
     Route: 058
  3. SOLOSTAR [Suspect]
     Indication: DIABETES MELLITUS
     Dates: start: 201201

REACTIONS (2)
  - Thyroid disorder [Unknown]
  - Blood glucose decreased [Unknown]
